FAERS Safety Report 7313770-X (Version None)
Quarter: 2011Q1

REPORT INFORMATION
  Report Type: 
  Country: None (occurrence: None)
  Receive Date: 20110225
  Receipt Date: 20110216
  Transmission Date: 20110831
  Serious: Yes (Other)
  Sender: FDA-Public Use
  Company Number: JP-PFIZER INC-2011032764

PATIENT
  Age: 73 Year
  Sex: Female

DRUGS (7)
  1. LYRICA [Suspect]
     Indication: NEURALGIA
     Dosage: 75 MG, 2X/DAY
     Dates: start: 20110208
  2. CRESTOR [Concomitant]
  3. ACTOS [Concomitant]
  4. AMARYL [Concomitant]
     Route: 048
  5. SITAGLIPTIN PHOSPHATE [Concomitant]
  6. METHYCOBAL [Concomitant]
     Route: 048
  7. SALOBEL [Concomitant]

REACTIONS (2)
  - BLOOD GLUCOSE INCREASED [None]
  - INCREASED APPETITE [None]
